FAERS Safety Report 8221124-7 (Version None)
Quarter: 2012Q1

REPORT INFORMATION
  Report Type: 
  Country: None (occurrence: None)
  Receive Date: 20120320
  Receipt Date: 20120315
  Transmission Date: 20120608
  Serious: Yes (Death)
  Sender: FDA-Public Use
  Company Number: US-BAYER-201018744NA

PATIENT
  Sex: Female

DRUGS (5)
  1. OMNISCAN [Suspect]
     Indication: IMAGING PROCEDURE
  2. PROHANCE [Suspect]
     Indication: IMAGING PROCEDURE
  3. MAGNEVIST [Suspect]
     Indication: IMAGING PROCEDURE
  4. OPTIMARK [Suspect]
     Indication: IMAGING PROCEDURE
  5. MULTIHANCE [Suspect]
     Indication: IMAGING PROCEDURE

REACTIONS (7)
  - SCAR [None]
  - GENERAL PHYSICAL HEALTH DETERIORATION [None]
  - DEFORMITY [None]
  - MOBILITY DECREASED [None]
  - PAIN [None]
  - FIBROSIS [None]
  - NEPHROGENIC SYSTEMIC FIBROSIS [None]
